FAERS Safety Report 22243598 (Version 1)
Quarter: 2023Q2

REPORT INFORMATION
  Report Type: Spontaneous
  Country: US (occurrence: US)
  Receive Date: 20230424
  Receipt Date: 20230424
  Transmission Date: 20230721
  Serious: No
  Sender: FDA-Public Use
  Company Number: US-JNJFOC-20230432608

PATIENT
  Age: 59 Year
  Sex: Female
  Weight: 64.468 kg

DRUGS (1)
  1. DARZALEX FASPRO [Suspect]
     Active Substance: DARATUMUMAB\HYALURONIDASE-FIHJ
     Indication: Plasma cell myeloma
     Dosage: 1800MG/15ML
     Route: 065
     Dates: start: 20230406

REACTIONS (2)
  - Blood pressure increased [Unknown]
  - Product quality issue [Unknown]
